FAERS Safety Report 19978666 (Version 1)
Quarter: 2021Q4

REPORT INFORMATION
  Report Type: Spontaneous
  Country: US (occurrence: US)
  Receive Date: 20211019
  Receipt Date: 20211019
  Transmission Date: 20220303
  Serious: Yes (Death)
  Sender: FDA-Public Use
  Company Number: None

PATIENT
  Age: 77 Year
  Sex: Male

DRUGS (1)
  1. OFEV [Suspect]
     Active Substance: NINTEDANIB
     Indication: Interstitial lung disease
     Route: 048
     Dates: start: 20190130, end: 20211015

REACTIONS (4)
  - Pulmonary hypertension [None]
  - Blood pressure increased [None]
  - Leukocytosis [None]
  - Palliative care [None]

NARRATIVE: CASE EVENT DATE: 20211015
